FAERS Safety Report 8196459-7 (Version None)
Quarter: 2012Q1

REPORT INFORMATION
  Report Type: 
  Country: None (occurrence: None)
  Receive Date: 20120309
  Receipt Date: 20120303
  Transmission Date: 20120608
  Serious: Yes (Hospitalization)
  Sender: FDA-Public Use
  Company Number: US-BAYER-2011-009493

PATIENT
  Age: 24 Year
  Sex: Female
  Weight: 66.667 kg

DRUGS (2)
  1. YASMIN [Suspect]
     Indication: CONTRACEPTION
     Dosage: UNK
     Dates: start: 20040801, end: 20041201
  2. IBUPROFEN (ADVIL) [Concomitant]
     Indication: ANALGESIC THERAPY
     Dosage: UNK UNK, PRN
     Route: 048

REACTIONS (5)
  - CHEST PAIN [None]
  - DYSPNOEA [None]
  - PULMONARY EMBOLISM [None]
  - PAIN [None]
  - INJURY [None]
